FAERS Safety Report 5531710-0 (Version None)
Quarter: 2007Q4

REPORT INFORMATION
  Report Type: 
  Country: None (occurrence: None)
  Receive Date: 20071128
  Receipt Date: 20071109
  Transmission Date: 20080405
  Serious: Yes (Other)
  Sender: FDA-Public Use
  Company Number: CHPA2007US12272

PATIENT
  Age: 72 Year
  Sex: Female

DRUGS (1)
  1. BENEFIBER UNKNOWN (NCH)(UNKNOWN) UNKNOWN [Suspect]
     Dosage: 3 TSP, QD, ORAL
     Route: 048
     Dates: start: 20000101

REACTIONS (1)
  - COLON CANCER [None]
